FAERS Safety Report 5407827-8 (Version None)
Quarter: 2007Q3

REPORT INFORMATION
  Report Type: 
  Country: None (occurrence: None)
  Receive Date: 20070803
  Receipt Date: 20070726
  Transmission Date: 20080115
  Serious: Yes (Other)
  Sender: FDA-Public Use
  Company Number: 2007SP015099

PATIENT
  Sex: Male

DRUGS (2)
  1. TEMODAR [Suspect]
     Indication: GLIOBLASTOMA MULTIFORME
     Dosage: 150 MG;QD;PO, 400 MG;QM;PO
     Route: 048
  2. TEMODAR [Suspect]
     Indication: GLIOBLASTOMA MULTIFORME
     Dosage: 150 MG;QD;PO, 400 MG;QM;PO
     Route: 048

REACTIONS (6)
  - ABASIA [None]
  - DEEP VEIN THROMBOSIS [None]
  - FALL [None]
  - LOSS OF CONTROL OF LEGS [None]
  - PULMONARY THROMBOSIS [None]
  - THERAPEUTIC RESPONSE UNEXPECTED [None]
